FAERS Safety Report 15293560 (Version 2)
Quarter: 2019Q1

REPORT INFORMATION
  Report Type: Report from Study
  Country: DE (occurrence: DE)
  Receive Date: 20180820
  Receipt Date: 20190318
  Transmission Date: 20190417
  Serious: Yes (Hospitalization)
  Sender: FDA-Public Use
  Company Number: DE-ROCHE-2169944

PATIENT
  Sex: Female

DRUGS (3)
  1. PREDNISOLON [Concomitant]
     Active Substance: PREDNISOLONE
  2. METHOTREXATE. [Suspect]
     Active Substance: METHOTREXATE
     Indication: RHEUMATOID ARTHRITIS
     Route: 065
  3. RITUXIMAB. [Suspect]
     Active Substance: RITUXIMAB
     Indication: RHEUMATOID ARTHRITIS
     Route: 065
     Dates: start: 20170911

REACTIONS (3)
  - Oesophageal candidiasis [Recovered/Resolved]
  - Weight decreased [Recovered/Resolved]
  - Rhinitis [Recovered/Resolved]

NARRATIVE: CASE EVENT DATE: 20180214
